FAERS Safety Report 14532091 (Version 2)
Quarter: 2018Q1

REPORT INFORMATION
  Report Type: Report from Study
  Country: None (occurrence: US)
  Receive Date: 20180214
  Receipt Date: 20180316
  Transmission Date: 20180509
  Serious: Yes (Hospitalization, Other)
  Sender: FDA-Public Use
  Company Number: US-ABBVIE-18K-163-2239954-00

PATIENT
  Age: 51 Year
  Sex: Male
  Weight: 106.69 kg

DRUGS (2)
  1. HUMIRA [Suspect]
     Active Substance: ADALIMUMAB
     Indication: HIDRADENITIS
     Route: 058
     Dates: start: 201705, end: 201801
  2. PREDNISONE. [Concomitant]
     Active Substance: PREDNISONE
     Indication: HIDRADENITIS

REACTIONS (6)
  - Drug ineffective [Not Recovered/Not Resolved]
  - Venous occlusion [Recovering/Resolving]
  - Pulmonary embolism [Recovering/Resolving]
  - Coronary artery embolism [Recovering/Resolving]
  - Loss of consciousness [Recovered/Resolved]
  - Coagulopathy [Not Recovered/Not Resolved]

NARRATIVE: CASE EVENT DATE: 2017
